FAERS Safety Report 17369775 (Version 1)
Quarter: 2020Q1

REPORT INFORMATION
  Report Type: Spontaneous
  Country: GR (occurrence: GR)
  Receive Date: 20200205
  Receipt Date: 20200205
  Transmission Date: 20200409
  Serious: Yes (Hospitalization)
  Sender: FDA-Public Use
  Company Number: GR-EDENBRIDGE PHARMACEUTICALS, LLC-GR-2020EDE000003

PATIENT
  Age: 33 Year
  Sex: Female

DRUGS (2)
  1. PREDNISOLONE SODIUM PHOSPHATE. [Suspect]
     Active Substance: PREDNISOLONE SODIUM PHOSPHATE
     Indication: PEMPHIGUS
     Dosage: UNK, (UPTO 30 MG/DAY)
     Route: 048
  2. HEPARIN [Concomitant]
     Active Substance: HEPARIN SODIUM
     Indication: FACTOR V LEIDEN MUTATION
     Dosage: UNK

REACTIONS (2)
  - Uterine rupture [Recovered/Resolved]
  - Exposure during pregnancy [Unknown]
